FAERS Safety Report 16290137 (Version 1)
Quarter: 2019Q2

REPORT INFORMATION
  Report Type: Spontaneous
  Country: ES (occurrence: ES)
  Receive Date: 20190509
  Receipt Date: 20190509
  Transmission Date: 20190711
  Serious: Yes (Other)
  Sender: FDA-Public Use
  Company Number: ES-GLAXOSMITHKLINE-ES2019GSK081792

PATIENT
  Age: 33 Year
  Sex: Female

DRUGS (1)
  1. INCRUSE ELLIPTA [Suspect]
     Active Substance: UMECLIDINIUM BROMIDE
     Indication: BRONCHIECTASIS
     Dosage: UNK
     Dates: start: 201810

REACTIONS (6)
  - Oxygen saturation decreased [Recovered/Resolved]
  - Pulmonary congestion [Recovered/Resolved]
  - Off label use [Unknown]
  - Pharyngitis [Unknown]
  - Asphyxia [Recovered/Resolved]
  - Rhinitis [Unknown]

NARRATIVE: CASE EVENT DATE: 2018
